FAERS Safety Report 16402993 (Version 1)
Quarter: 2019Q2

REPORT INFORMATION
  Report Type: Report from Study
  Country: US (occurrence: US)
  Receive Date: 20190607
  Receipt Date: 20190607
  Transmission Date: 20190711
  Serious: Yes (Hospitalization)
  Sender: FDA-Public Use
  Company Number: PHEH2019US023235

PATIENT
  Sex: Male

DRUGS (2)
  1. ENTRESTO [Suspect]
     Active Substance: SACUBITRIL\VALSARTAN
     Indication: PRODUCT USED FOR UNKNOWN INDICATION
     Dosage: 1 DF (24MG OF SACUBITRIL/ 26MG OF VALSARTAN), BID
     Route: 048
  2. ENTRESTO [Suspect]
     Active Substance: SACUBITRIL\VALSARTAN
     Dosage: 1 DF (49MG OF SACUBITRIL/ 51MG OF VALSARTAN), BID
     Route: 048

REACTIONS (8)
  - Mobility decreased [Unknown]
  - Head injury [Unknown]
  - Dyspnoea [Unknown]
  - Somnambulism [Unknown]
  - Fall [Unknown]
  - Haemorrhage [Unknown]
  - Malaise [Unknown]
  - Ejection fraction abnormal [Unknown]
